FAERS Safety Report 9455836 (Version 1)
Quarter: 2013Q3

REPORT INFORMATION
  Report Type: Spontaneous
  Country: US (occurrence: US)
  Receive Date: 20130813
  Receipt Date: 20130813
  Transmission Date: 20140515
  Serious: No
  Sender: FDA-Public Use
  Company Number: US-PFIZER INC-2013233006

PATIENT
  Age: 64 Year
  Sex: Male
  Weight: 115 kg

DRUGS (1)
  1. TIKOSYN [Suspect]
     Indication: ATRIAL FIBRILLATION
     Dosage: 500 UG, UNK
     Dates: start: 20130805

REACTIONS (1)
  - Electrocardiogram abnormal [Unknown]
